FAERS Safety Report 8311104-5 (Version None)
Quarter: 2012Q2

REPORT INFORMATION
  Report Type: 
  Country: None (occurrence: None)
  Receive Date: 20120425
  Receipt Date: 20120412
  Transmission Date: 20120825
  Serious: Yes (Hospitalization)
  Sender: FDA-Public Use
  Company Number: US-VIROPHARMA INCORPORATED-20120412CINRY2846

PATIENT
  Sex: Male

DRUGS (3)
  1. CHEMOTHERAPY [Concomitant]
     Indication: CHRONIC MYELOID LEUKAEMIA
     Dosage: UNKNOWN
     Route: 065
  2. KALBITOR [Concomitant]
     Indication: HEREDITARY ANGIOEDEMA
     Dosage: UNKNOWN
     Route: 065
  3. CINRYZE [Suspect]
     Indication: HEREDITARY ANGIOEDEMA

REACTIONS (3)
  - INCORRECT DRUG ADMINISTRATION DURATION [None]
  - PANCREATITIS [None]
  - HEREDITARY ANGIOEDEMA [None]
